FAERS Safety Report 25680730 (Version 1)
Quarter: 2025Q3

REPORT INFORMATION
  Report Type: Report from Study
  Country: EU (occurrence: EU)
  Receive Date: 20250814
  Receipt Date: 20250814
  Transmission Date: 20251021
  Serious: Yes (Death, Hospitalization, Other)
  Sender: ABBVIE
  Company Number: EU-ABBVIE-6412310

PATIENT
  Age: 64 Year
  Sex: Female

DRUGS (1)
  1. RINVOQ [Suspect]
     Active Substance: UPADACITINIB
     Indication: Ankylosing spondylitis
     Dosage: 15 MILLIGRAM
     Route: 048
     Dates: start: 20231003, end: 20250804

REACTIONS (7)
  - Bacterial infection [Fatal]
  - Dyspnoea [Fatal]
  - Renal function test abnormal [Fatal]
  - Dehydration [Fatal]
  - Urinary tract infection [Fatal]
  - Hypoxia [Fatal]
  - Unevaluable event [Fatal]

NARRATIVE: CASE EVENT DATE: 20250805
